FAERS Safety Report 9451126 (Version 1)
Quarter: 2013Q3

REPORT INFORMATION
  Report Type: Spontaneous
  Country: CN (occurrence: CN)
  Receive Date: 20130809
  Receipt Date: 20130809
  Transmission Date: 20140515
  Serious: Yes (Other)
  Sender: FDA-Public Use
  Company Number: PHHY2013CN083635

PATIENT
  Age: 54 Year
  Sex: Female

DRUGS (5)
  1. TACROLIMUS [Suspect]
     Indication: IMMUNOSUPPRESSION
     Dosage: 3 MG, BID
     Route: 048
  2. TACROLIMUS [Suspect]
     Dosage: 1.5 MG, BID
     Route: 048
  3. MYCOPHENOLATE MOFETIL [Suspect]
     Indication: IMMUNOSUPPRESSION
     Dosage: 500 MG, BID
     Route: 048
  4. PREDNISONE [Suspect]
     Indication: IMMUNOSUPPRESSION
     Dosage: 10MG EVERY MORNING
     Route: 048
  5. PREDNISONE [Suspect]
     Dosage: 5 MG, QD
     Route: 048

REACTIONS (4)
  - Anal squamous cell carcinoma [Recovered/Resolved]
  - Haematochezia [Recovered/Resolved]
  - Bronchiectasis [Unknown]
  - Aspergillus infection [Unknown]
